FAERS Safety Report 8658728 (Version 4)
Quarter: 2012Q4

REPORT INFORMATION
  Report Type: 
  Country: GB (occurrence: GB)
  Receive Date: 20120710
  Receipt Date: 20121018
  Transmission Date: 20130627
  Serious: Yes (Other)
  Sender: FDA-Public Use
  Company Number: PHFR2012GB001240

PATIENT
  Age: 40 Year
  Sex: Male

DRUGS (7)
  1. CLOZARIL [Suspect]
     Indication: SCHIZOPHRENIA
     Dosage: 500 mg daily
     Route: 048
     Dates: start: 2005
  2. CLOZARIL [Suspect]
     Route: 048
     Dates: start: 20070220
  3. HYOSCINE HYDROBROMIDE [Concomitant]
     Indication: SALIVARY HYPERSECRETION
     Dosage: 600 mg daily
     Route: 048
  4. LANSOPRAZOLE [Concomitant]
     Dosage: 30 mg daily
     Route: 048
  5. ESCITALOPRAM [Concomitant]
     Indication: ANXIETY
     Dosage: 10 mg daily
     Route: 048
  6. FERROUS FUMARATE [Concomitant]
     Indication: IRON DEFICIENCY
     Dosage: 305 mg, BID
     Route: 048
  7. SALBUTAMOL [Concomitant]
     Indication: DYSPNOEA
     Dosage: UNK UKN, PRN

REACTIONS (7)
  - Hypogammaglobulinaemia [Unknown]
  - Pyrexia [Unknown]
  - Headache [Unknown]
  - Respiratory tract infection [Unknown]
  - Differential white blood cell count abnormal [Unknown]
  - Neutrophil count increased [Unknown]
  - White blood cell count increased [Unknown]
